FAERS Safety Report 4313059-7 (Version None)
Quarter: 2004Q1

REPORT INFORMATION
  Report Type: 
  Country: None (occurrence: None)
  Receive Date: 20040304
  Receipt Date: 20040223
  Transmission Date: 20041129
  Serious: Yes (Hospitalization)
  Sender: FDA-Public Use
  Company Number: 2004010077

PATIENT
  Sex: 0

DRUGS (1)
  1. NORVASC [Suspect]
     Indication: ILL-DEFINED DISORDER
     Dosage: ORAL
     Route: 048

REACTIONS (7)
  - ACUTE MYOCARDIAL INFARCTION [None]
  - ARTERIOGRAM CORONARY ABNORMAL [None]
  - CARDIAC FAILURE [None]
  - CARDIOMYOPATHY [None]
  - ILEUS [None]
  - TOXIC SKIN ERUPTION [None]
  - VENTRICULAR ASYSTOLE [None]
